FAERS Safety Report 4618375-7 (Version None)
Quarter: 2005Q1

REPORT INFORMATION
  Report Type: 
  Country: None (occurrence: None)
  Receive Date: 20050324
  Receipt Date: 20050304
  Transmission Date: 20050727
  Serious: Yes (Hospitalization)
  Sender: FDA-Public Use
  Company Number: EWC050343059

PATIENT
  Age: 18 Year
  Sex: Male

DRUGS (1)
  1. PROZAC [Suspect]
     Indication: OBSESSIVE-COMPULSIVE DISORDER
     Dosage: 20 MG DAY
     Dates: start: 20030301, end: 20050201

REACTIONS (2)
  - HYDRONEPHROSIS [None]
  - POSTOPERATIVE ADHESION [None]
